FAERS Safety Report 18136172 (Version 1)
Quarter: 2020Q3

REPORT INFORMATION
  Report Type: Spontaneous
  Country: CA (occurrence: CA)
  Receive Date: 20200811
  Receipt Date: 20200811
  Transmission Date: 20201103
  Serious: Yes (Other)
  Sender: FDA-Public Use
  Company Number: CA-PFIZER INC-2020305674

PATIENT
  Age: 84 Year
  Sex: Male

DRUGS (5)
  1. LEFLUNOMIDE. [Concomitant]
     Active Substance: LEFLUNOMIDE
     Dosage: UNK (10 MG OR 15 MG)
     Route: 065
     Dates: start: 20200401, end: 20200703
  2. HYDROXYCHLOROQUINE [Concomitant]
     Active Substance: HYDROXYCHLOROQUINE
     Dosage: UNK (400 MG OR 200 MG EVERY DAY (QD),)
     Route: 065
     Dates: start: 20200212
  3. PREDNISONE. [Concomitant]
     Active Substance: PREDNISONE
     Dosage: 10 MG
     Route: 065
  4. HYDROXYCHLOROQUINE [Concomitant]
     Active Substance: HYDROXYCHLOROQUINE
     Dosage: 400 MG
     Route: 065
     Dates: start: 20200212
  5. METHOTREXATE SODIUM. [Suspect]
     Active Substance: METHOTREXATE SODIUM
     Dosage: UNK (15 MG OR 20 MG)
     Route: 065
     Dates: start: 20200212, end: 20200703

REACTIONS (5)
  - Latent tuberculosis [Unknown]
  - Drug ineffective [Unknown]
  - Nausea [Unknown]
  - Liver function test increased [Unknown]
  - Drug intolerance [Unknown]
